FAERS Safety Report 25351732 (Version 2)
Quarter: 2025Q2

REPORT INFORMATION
  Report Type: Spontaneous
  Country: EE (occurrence: EE)
  Receive Date: 20250523
  Receipt Date: 20250526
  Transmission Date: 20250716
  Serious: Yes (Death, Other)
  Sender: EXELIXIS
  Company Number: EE-IPSEN Group, Research and Development-2025-11908

PATIENT
  Age: 50 Year
  Sex: Female

DRUGS (1)
  1. CABOMETYX [Suspect]
     Active Substance: CABOZANTINIB S-MALATE
     Indication: Clear cell renal cell carcinoma
     Route: 065
     Dates: start: 202303, end: 202501

REACTIONS (2)
  - Death [Fatal]
  - Malignant neoplasm progression [Unknown]
